FAERS Safety Report 24590882 (Version 1)
Quarter: 2024Q4

REPORT INFORMATION
  Report Type: Report from Study
  Country: US (occurrence: US)
  Receive Date: 20241107
  Receipt Date: 20241107
  Transmission Date: 20250115
  Serious: No
  Sender: SUNOVION
  Company Number: US-SUMITOMO PHARMA SWITZERLAND GMBH-2024SPA004653

PATIENT

DRUGS (6)
  1. ORGOVYX [Suspect]
     Active Substance: RELUGOLIX
     Indication: Prostate cancer
     Dosage: UNKNOWN
     Route: 048
  2. ORGOVYX [Suspect]
     Active Substance: RELUGOLIX
     Dosage: 120 MG, QD
     Route: 048
     Dates: start: 20230629
  3. BACTRIM [Suspect]
     Active Substance: SULFAMETHOXAZOLE\TRIMETHOPRIM
     Route: 065
  4. DOXYCYCLINE [Suspect]
     Active Substance: DOXYCYCLINE
     Route: 065
  5. ABIRATERONE [Concomitant]
     Active Substance: ABIRATERONE\ABIRATERONE ACETATE
     Indication: Prostate cancer
     Dosage: 1000 MG DAILY
     Route: 065
     Dates: start: 202307
  6. PREDNISONE [Concomitant]
     Active Substance: PREDNISONE
     Indication: Prostate cancer
     Dosage: 10 MG DAILY
     Route: 065
     Dates: start: 202307

REACTIONS (1)
  - Drug hypersensitivity [Unknown]
